FAERS Safety Report 15841588 (Version 1)
Quarter: 2019Q1

REPORT INFORMATION
  Report Type: Spontaneous
  Country: US (occurrence: US)
  Receive Date: 20190118
  Receipt Date: 20190118
  Transmission Date: 20190417
  Serious: Yes (Other)
  Sender: FDA-Public Use
  Company Number: US-JNJFOC-20190116213

PATIENT
  Sex: Female

DRUGS (1)
  1. NEUTROGENA NORWEGIAN FORMULA LIP MOISTURIZER SPF15 [Suspect]
     Active Substance: OCTINOXATE\OXYBENZONE
     Indication: PRODUCT USED FOR UNKNOWN INDICATION
     Route: 065

REACTIONS (1)
  - Drug dependence [Not Recovered/Not Resolved]
